FAERS Safety Report 5636730-3 (Version None)
Quarter: 2008Q1

REPORT INFORMATION
  Report Type: 
  Country: None (occurrence: None)
  Receive Date: 20080225
  Receipt Date: 20080212
  Transmission Date: 20080703
  Serious: Yes (Other)
  Sender: FDA-Public Use
  Company Number: US-ROCHE-546976

PATIENT
  Age: 56 Year

DRUGS (2)
  1. TAMIFLU [Suspect]
     Route: 065
  2. HERBAL EXTRACTS NOS [Suspect]
     Indication: DRUG USE FOR UNKNOWN INDICATION
     Dosage: DRUG: HISTATUS
     Route: 065

REACTIONS (2)
  - ANXIETY [None]
  - DEPRESSION [None]
